FAERS Safety Report 15227258 (Version 2)
Quarter: 2021Q4

REPORT INFORMATION
  Report Type: Spontaneous
  Country: ES (occurrence: ES)
  Receive Date: 20180801
  Receipt Date: 20211021
  Transmission Date: 20220303
  Serious: Yes (Hospitalization, Other)
  Sender: FDA-Public Use
  Company Number: None

PATIENT
  Age: 50 Year
  Sex: Female

DRUGS (5)
  1. ABCIXIMAB [Suspect]
     Active Substance: ABCIXIMAB
     Indication: Catheter placement
     Route: 040
  2. ASPIRIN [Interacting]
     Active Substance: ASPIRIN
     Indication: Antiplatelet therapy
     Route: 065
  3. ASPIRIN [Interacting]
     Active Substance: ASPIRIN
     Route: 065
  4. CLOPIDOGREL BISULFATE [Interacting]
     Active Substance: CLOPIDOGREL BISULFATE
     Indication: Antiplatelet therapy
     Route: 065
  5. ENOXAPARIN SODIUM [Interacting]
     Active Substance: ENOXAPARIN SODIUM
     Indication: Anticoagulant therapy
     Route: 058

REACTIONS (7)
  - Immune thrombocytopenia [Recovered/Resolved]
  - Labelled drug-drug interaction medication error [Unknown]
  - Anaemia [Recovering/Resolving]
  - Petechiae [Recovered/Resolved]
  - Melaena [Unknown]
  - Ecchymosis [Recovered/Resolved]
  - Hypotension [Unknown]
